FAERS Safety Report 5650861-3 (Version None)
Quarter: 2008Q1

REPORT INFORMATION
  Report Type: 
  Country: None (occurrence: None)
  Receive Date: 20080131
  Receipt Date: 20071214
  Transmission Date: 20080703
  Serious: No
  Sender: FDA-Public Use
  Company Number: US200712001815

PATIENT
  Age: 61 Year
  Sex: Female
  Weight: 72.6 kg

DRUGS (2)
  1. BYETTA [Suspect]
     Indication: TYPE 2 DIABETES MELLITUS
     Dosage: 10 UG, 2/D, SUBCUTANEOUS
     Route: 058
     Dates: start: 20060901
  2. METFORMIN HCL [Concomitant]

REACTIONS (6)
  - BRONCHITIS [None]
  - DIZZINESS [None]
  - EAR INFECTION [None]
  - INJECTION SITE BRUISING [None]
  - INJECTION SITE PAIN [None]
  - WEIGHT DECREASED [None]
